FAERS Safety Report 20367654 (Version 1)
Quarter: 2022Q1

REPORT INFORMATION
  Report Type: Spontaneous
  Country: DE (occurrence: DE)
  Receive Date: 20220124
  Receipt Date: 20220124
  Transmission Date: 20220423
  Serious: Yes (Hospitalization)
  Sender: FDA-Public Use
  Company Number: DE-Accord-250229

PATIENT
  Age: 81 Year
  Sex: Female
  Weight: 83 kg

DRUGS (2)
  1. PACLITAXEL [Suspect]
     Active Substance: PACLITAXEL
     Indication: Product used for unknown indication
     Dosage: STRENGTH: 6 MG/ML, 350
     Dates: start: 20211116, end: 20211116
  2. CARBOPLATIN [Concomitant]
     Active Substance: CARBOPLATIN
     Indication: Product used for unknown indication
     Dates: start: 20211116, end: 20211116

REACTIONS (3)
  - Dizziness [Unknown]
  - Feeling hot [Unknown]
  - Hyperhidrosis [Unknown]

NARRATIVE: CASE EVENT DATE: 20211116
